FAERS Safety Report 8914671 (Version 1)
Quarter: 2012Q4

REPORT INFORMATION
  Report Type: 
  Country: VN (occurrence: VN)
  Receive Date: 20121116
  Receipt Date: 20121116
  Transmission Date: 20130627
  Serious: Yes (Hospitalization, Other)
  Sender: FDA-Public Use
  Company Number: VN-BAXTER-2012BAX014833

PATIENT
  Age: 64 Year
  Sex: Female

DRUGS (1)
  1. DIANEAL LOW CALCIUM (2,5MEQ.L) PERITIONEAL DIALYSIS SOLUTION WITH 1.5% [Suspect]
     Indication: CONTINUOUS AMBULATORY PERITONEAL DIALYSIS
     Route: 033
     Dates: start: 20120115

REACTIONS (4)
  - Cardiac failure [Unknown]
  - Mental disorder [Unknown]
  - Peritonitis [Recovered/Resolved]
  - Pyrexia [Unknown]
